FAERS Safety Report 21925791 (Version 1)
Quarter: 2023Q1

REPORT INFORMATION
  Report Type: Spontaneous
  Country: ES (occurrence: ES)
  Receive Date: 20230130
  Receipt Date: 20230130
  Transmission Date: 20230418
  Serious: Yes (Other)
  Sender: FDA-Public Use
  Company Number: ES-ADMA BIOLOGICS INC.-ES-2023ADM000006

PATIENT

DRUGS (1)
  1. HUMAN IMMUNOGLOBULIN G [Suspect]
     Active Substance: HUMAN IMMUNOGLOBULIN G
     Indication: Anti-neutrophil cytoplasmic antibody positive vasculitis
     Dosage: 2 G/KG ON ONE TO FIVE DAYS
     Route: 042

REACTIONS (2)
  - Cardiac failure congestive [Unknown]
  - Off label use [Unknown]
